FAERS Safety Report 20747781 (Version 1)
Quarter: 2022Q2

REPORT INFORMATION
  Report Type: Spontaneous
  Country: BR (occurrence: BR)
  Receive Date: 20220425
  Receipt Date: 20220425
  Transmission Date: 20220721
  Serious: Yes (Other)
  Sender: FDA-Public Use
  Company Number: BR-SA-SAC20220422001366

PATIENT
  Sex: Male

DRUGS (1)
  1. FEXOFENADINE HYDROCHLORIDE [Suspect]
     Active Substance: FEXOFENADINE HYDROCHLORIDE
     Indication: Hypersensitivity
     Dosage: 2 ML, BID
     Route: 065

REACTIONS (7)
  - Hypothermia [Unknown]
  - Irritability [Unknown]
  - Pain in extremity [Unknown]
  - Feeling cold [Unknown]
  - Moaning [Unknown]
  - Malaise [Unknown]
  - Insomnia [Unknown]
